FAERS Safety Report 10514815 (Version 2)
Quarter: 2014Q4

REPORT INFORMATION
  Report Type: Spontaneous
  Country: US (occurrence: US)
  Receive Date: 20141013
  Receipt Date: 20141113
  Transmission Date: 20150528
  Serious: Yes (Hospitalization)
  Sender: FDA-Public Use
  Company Number: US-GILEAD-2014-0117804

PATIENT
  Age: 27 Year
  Sex: Male

DRUGS (9)
  1. LETAIRIS [Suspect]
     Active Substance: AMBRISENTAN
     Indication: COR PULMONALE CHRONIC
     Dosage: 5 MG, UNK
     Route: 065
     Dates: start: 20140320
  2. COREG [Concomitant]
     Active Substance: CARVEDILOL
     Dosage: UNK
     Dates: end: 201410
  3. PROTONIX [Concomitant]
     Active Substance: PANTOPRAZOLE SODIUM
  4. ENALAPRIL [Concomitant]
     Active Substance: ENALAPRIL
  5. ASPIRIN                            /00002701/ [Concomitant]
     Active Substance: ASPIRIN
     Dosage: UNK
     Dates: end: 201410
  6. SPIRONOLACTONE. [Concomitant]
     Active Substance: SPIRONOLACTONE
  7. SOTALOL. [Concomitant]
     Active Substance: SOTALOL
  8. FUROSEMIDE. [Concomitant]
     Active Substance: FUROSEMIDE
  9. COUMADIN [Concomitant]
     Active Substance: WARFARIN SODIUM
     Dosage: UNK

REACTIONS (4)
  - Fluid retention [Recovered/Resolved]
  - Arrhythmia [Recovered/Resolved]
  - Hypertension [Unknown]
  - Ulcer haemorrhage [Recovered/Resolved]

NARRATIVE: CASE EVENT DATE: 20141002
